FAERS Safety Report 8817388 (Version 1)
Quarter: 2012Q4

REPORT INFORMATION
  Report Type: 
  Country: GR (occurrence: GR)
  Receive Date: 20121004
  Receipt Date: 20121004
  Transmission Date: 20130627
  Serious: Yes (Other)
  Sender: FDA-Public Use
  Company Number: GR-PFIZER INC-2012245555

PATIENT
  Age: 41 Year
  Sex: Female

DRUGS (1)
  1. XANAX [Suspect]
     Dosage: 0.25 mg, 3x/day

REACTIONS (1)
  - Intraocular pressure test [Unknown]
